FAERS Safety Report 10204701 (Version 1)
Quarter: 2014Q2

REPORT INFORMATION
  Report Type: Spontaneous
  Country: BR (occurrence: BR)
  Receive Date: 20140529
  Receipt Date: 20140529
  Transmission Date: 20141212
  Serious: Yes (Other)
  Sender: FDA-Public Use
  Company Number: BR-GLAXOSMITHKLINE-A1074822A

PATIENT
  Age: 2 Year
  Sex: Female

DRUGS (2)
  1. FLIXOTIDE [Suspect]
     Indication: PRODUCT USED FOR UNKNOWN INDICATION
     Route: 055
  2. AEROLIN [Suspect]
     Indication: ASTHMATIC CRISIS
     Route: 065

REACTIONS (2)
  - Neutropenia [Unknown]
  - Asthmatic crisis [Recovered/Resolved]
